FAERS Safety Report 16117450 (Version 2)
Quarter: 2019Q2

REPORT INFORMATION
  Report Type: Spontaneous
  Country: DK (occurrence: DK)
  Receive Date: 20190326
  Receipt Date: 20190403
  Transmission Date: 20190711
  Serious: Yes (Hospitalization)
  Sender: FDA-Public Use
  Company Number: PHHY2019DK063214

PATIENT
  Age: 63 Year
  Sex: Female

DRUGS (6)
  1. FOLINIC ACID [Concomitant]
     Active Substance: LEUCOVORIN
     Indication: VITAMIN SUPPLEMENTATION
     Dosage: 5 MG, UNK (5 MG TORSDAG OG 5 MG L?RDAG)
     Route: 048
     Dates: start: 20130715
  2. FOLINIC ACID [Concomitant]
     Active Substance: LEUCOVORIN
     Dosage: 5 MG, UNK (5 MG TORSDAG OG 5 MG L?RDAG)
     Route: 048
     Dates: start: 20181022
  3. STEROIDS (NOS) [Concomitant]
     Active Substance: UNSPECIFIED INGREDIENT
     Indication: STEROID THERAPY
     Dosage: DOSIS: UKENDT, STYRKE: UKENDT.
  4. ALENDRONIC ACID [Suspect]
     Active Substance: ALENDRONIC ACID
     Indication: OSTEOPOROSIS
     Dosage: 70 MG, QW
     Route: 048
     Dates: start: 201405
  5. ALENDRONIC ACID [Suspect]
     Active Substance: ALENDRONIC ACID
     Dosage: 70 MG, QW
     Route: 048
     Dates: start: 20180604
  6. METHOTREXATE. [Suspect]
     Active Substance: METHOTREXATE
     Indication: RHEUMATOID ARTHRITIS
     Dosage: UNK
     Route: 058

REACTIONS (4)
  - Fracture delayed union [Unknown]
  - Impaired healing [Unknown]
  - Stress fracture [Unknown]
  - Pain [Unknown]

NARRATIVE: CASE EVENT DATE: 201510
